FAERS Safety Report 17471552 (Version 1)
Quarter: 2020Q1

REPORT INFORMATION
  Report Type: Spontaneous
  Country: US (occurrence: US)
  Receive Date: 20200228
  Receipt Date: 20200228
  Transmission Date: 20200409
  Serious: No
  Sender: FDA-Public Use
  Company Number: US-ASTRAZENECA-2020SE19689

PATIENT
  Age: 62 Year
  Sex: Female
  Weight: 102.1 kg

DRUGS (4)
  1. CRESTOR [Suspect]
     Active Substance: ROSUVASTATIN CALCIUM
     Indication: BLOOD CHOLESTEROL INCREASED
     Dosage: 10 OR 20 MG,DAILY.
     Route: 048
     Dates: start: 201912
  2. LIVALO [Concomitant]
     Active Substance: PITAVASTATIN CALCIUM
     Indication: BLOOD CHOLESTEROL INCREASED
  3. LOSARTAN. [Concomitant]
     Active Substance: LOSARTAN
     Indication: HYPERTENSION
     Dosage: 100/25 MG.
  4. CRESTOR [Suspect]
     Active Substance: ROSUVASTATIN CALCIUM
     Indication: BLOOD CHOLESTEROL INCREASED
     Dosage: 10 OR 20 MG,DAILY.
     Route: 048
     Dates: start: 20191207, end: 20191216

REACTIONS (14)
  - Dysstasia [Recovered/Resolved]
  - Intentional product misuse [Unknown]
  - Skin toxicity [Recovered/Resolved]
  - Hypersensitivity [Recovered/Resolved]
  - Intentional dose omission [Unknown]
  - Pyrexia [Recovered/Resolved]
  - Lip disorder [Recovered/Resolved]
  - Musculoskeletal pain [Recovered/Resolved]
  - Skin exfoliation [Unknown]
  - Myalgia [Recovered/Resolved]
  - Dry skin [Recovered/Resolved]
  - Feeling hot [Recovered/Resolved]
  - Blood cholesterol increased [Not Recovered/Not Resolved]
  - Pruritus [Recovered/Resolved]

NARRATIVE: CASE EVENT DATE: 201911
